FAERS Safety Report 25478040 (Version 1)
Quarter: 2025Q2

REPORT INFORMATION
  Report Type: Report from Study
  Country: US (occurrence: US)
  Receive Date: 20250625
  Receipt Date: 20250625
  Transmission Date: 20250716
  Serious: No
  Sender: SUNOVION
  Company Number: US-SUMITOMO PHARMA SWITZERLAND GMBH-2025SPA006971

PATIENT

DRUGS (16)
  1. ORGOVYX [Suspect]
     Active Substance: RELUGOLIX
     Indication: Prostate cancer
     Route: 048
  2. ORGOVYX [Suspect]
     Active Substance: RELUGOLIX
     Dosage: 120 MG, QD
     Route: 048
  3. ASPIRIN [Concomitant]
     Active Substance: ASPIRIN
     Route: 065
  4. ATORVASTATIN [Concomitant]
     Active Substance: ATORVASTATIN
     Route: 065
  5. DONEPEZIL [Concomitant]
     Active Substance: DONEPEZIL
     Route: 065
  6. FLAXSEED [Concomitant]
     Active Substance: FLAX SEED
     Route: 065
  7. FISH OIL\OMEGA-3 FATTY ACIDS [Concomitant]
     Active Substance: FISH OIL\OMEGA-3 FATTY ACIDS
     Route: 065
  8. JARDIANCE [Concomitant]
     Active Substance: EMPAGLIFLOZIN
     Route: 065
  9. MEMANTINE [Concomitant]
     Active Substance: MEMANTINE
     Route: 065
  10. MIRTAZAPINE [Concomitant]
     Active Substance: MIRTAZAPINE
     Route: 065
  11. NIACIN [Concomitant]
     Active Substance: NIACIN
     Route: 065
  12. NUBEQA [Concomitant]
     Active Substance: DAROLUTAMIDE
     Route: 065
  13. OLMESARTAN [Concomitant]
     Active Substance: OLMESARTAN
     Route: 065
  14. REPATHA [Concomitant]
     Active Substance: EVOLOCUMAB
     Route: 058
  15. THIAMINE MONONITRATE [Concomitant]
     Active Substance: THIAMINE MONONITRATE
     Route: 065
  16. TROSPIUM CHLORIDE [Concomitant]
     Active Substance: TROSPIUM CHLORIDE
     Route: 065

REACTIONS (2)
  - Sluggishness [Unknown]
  - Decreased appetite [Unknown]
